FAERS Safety Report 4806914-2 (Version None)
Quarter: 2005Q4

REPORT INFORMATION
  Report Type: 
  Country: None (occurrence: None)
  Receive Date: 20051019
  Receipt Date: 20051004
  Transmission Date: 20060501
  Serious: Yes (Other)
  Sender: FDA-Public Use
  Company Number: 2005-00920

PATIENT
  Age: 65 Year
  Sex: Male
  Weight: 80 kg

DRUGS (2)
  1. VELCADE [Suspect]
     Indication: MULTIPLE MYELOMA
     Dosage: 2/WEEK, INTRAVENOUS
     Route: 042
  2. NSAID'S [Concomitant]

REACTIONS (5)
  - CARDIAC FAILURE ACUTE [None]
  - DECREASED ACTIVITY [None]
  - GRAVITATIONAL OEDEMA [None]
  - HEPATOMEGALY [None]
  - TACHYARRHYTHMIA [None]
